FAERS Safety Report 9457901 (Version 3)
Quarter: 2013Q4

REPORT INFORMATION
  Report Type: Spontaneous
  Country: US (occurrence: US)
  Receive Date: 20130814
  Receipt Date: 20131105
  Transmission Date: 20140711
  Serious: Yes (Other)
  Sender: FDA-Public Use
  Company Number: US-ASTELLAS-2013US008425

PATIENT
  Age: 77 Year
  Sex: Female
  Weight: 87 kg

DRUGS (8)
  1. MYRBETRIQ [Suspect]
     Indication: HYPERTONIC BLADDER
     Dosage: 50 MG, UID/QD
     Route: 048
     Dates: start: 20130509, end: 20130517
  2. MYRBETRIQ [Suspect]
     Indication: URINARY INCONTINENCE
  3. DETROL LA [Suspect]
     Indication: HYPERTONIC BLADDER
     Dosage: UNK
     Route: 065
  4. DETROL LA [Suspect]
     Indication: URINARY INCONTINENCE
  5. NEURONTIN [Suspect]
     Indication: NEUROPATHY PERIPHERAL
     Dosage: 9000 MG, TOTAL DOSE
     Route: 065
  6. NEURONTIN [Suspect]
     Indication: FIBROMYALGIA
     Dosage: 800 MG, (200 MG MORNING, 400 MG AFTERNOON AND 200 MG IN EVENING)
  7. SIMVASTATIN [Suspect]
     Indication: BLOOD CHOLESTEROL INCREASED
     Dosage: UNK
     Route: 065
  8. SYNTHROID [Concomitant]
     Indication: AUTOIMMUNE THYROIDITIS
     Dosage: 0.150 MG, UID/QD
     Route: 065

REACTIONS (3)
  - Drug ineffective [Unknown]
  - Intentional drug misuse [Unknown]
  - Cataract operation [Recovered/Resolved]
